FAERS Safety Report 16358593 (Version 1)
Quarter: 2019Q2

REPORT INFORMATION
  Report Type: Spontaneous
  Country: US (occurrence: US)
  Receive Date: 20190527
  Receipt Date: 20190527
  Transmission Date: 20190711
  Serious: No
  Sender: FDA-Public Use
  Company Number: US-009507513-1905USA012077

PATIENT
  Age: 5 Month
  Sex: Female

DRUGS (3)
  1. CANCIDAS [Suspect]
     Active Substance: CASPOFUNGIN ACETATE
     Indication: COCCIDIOIDOMYCOSIS
     Dosage: UNK
  2. VORICONAZOLE. [Concomitant]
     Active Substance: VORICONAZOLE
     Indication: COCCIDIOIDOMYCOSIS
     Dosage: UNK
  3. AMPHOTERICIN B. [Concomitant]
     Active Substance: AMPHOTERICIN B
     Indication: COCCIDIOIDOMYCOSIS
     Dosage: UNK

REACTIONS (1)
  - Product use in unapproved indication [Unknown]
